FAERS Safety Report 4351096-7 (Version None)
Quarter: 2004Q2

REPORT INFORMATION
  Report Type: 
  Country: None (occurrence: None)
  Receive Date: 20040427
  Receipt Date: 20040420
  Transmission Date: 20050107
  Serious: Yes (Disabling, Other)
  Sender: FDA-Public Use
  Company Number: 2004196214GB

PATIENT
  Age: 20 Year
  Sex: Female
  Weight: 54.4 kg

DRUGS (1)
  1. DEPO-PROVERA [Suspect]
     Indication: CONTRACEPTION
     Dosage: 150 MG, FIRST INJECT., INTRAMUSCULAR
     Route: 030
     Dates: start: 20010801, end: 20010801

REACTIONS (2)
  - INJECTION SITE ATROPHY [None]
  - MUSCLE ATROPHY [None]
